FAERS Safety Report 8881444 (Version 2)
Quarter: 2013Q1

REPORT INFORMATION
  Report Type: Spontaneous
  Country: FR (occurrence: FR)
  Receive Date: 20121101
  Receipt Date: 20130308
  Transmission Date: 20140127
  Serious: Yes (Death)
  Sender: FDA-Public Use
  Company Number: FR-GENZYME-CERZ-1002688

PATIENT
  Age: 3 Year
  Sex: Male

DRUGS (1)
  1. CEREZYME [Suspect]
     Indication: GAUCHER^S DISEASE
     Dosage: 4 VIALS, Q2W
     Route: 042
     Dates: start: 201106

REACTIONS (1)
  - Gaucher^s disease [Fatal]
